FAERS Safety Report 13246040 (Version 1)
Quarter: 2017Q1

REPORT INFORMATION
  Report Type: Spontaneous
  Country: US (occurrence: US)
  Receive Date: 20170217
  Receipt Date: 20170217
  Transmission Date: 20170428
  Serious: Yes (Hospitalization)
  Sender: FDA-Public Use
  Company Number: US-B.I. PHARMACEUTICALS,INC./RIDGEFIELD-2017-BI-008159

PATIENT
  Sex: Female

DRUGS (9)
  1. LEVOTHYROXIN [Concomitant]
     Active Substance: LEVOTHYROXINE
     Indication: HYPOTHYROIDISM
     Dosage: QD;  FORM STRENGTH: 75MCG
     Route: 048
  2. MONTELUKAST [Concomitant]
     Active Substance: MONTELUKAST SODIUM
     Indication: ASTHMA
     Dosage: QD;  FORM STRENGTH: 10MG
     Route: 048
     Dates: start: 2013
  3. SPIRIVA [Suspect]
     Active Substance: TIOTROPIUM BROMIDE MONOHYDRATE
     Indication: CHRONIC OBSTRUCTIVE PULMONARY DISEASE
     Dosage: 1 QD;  FORM STRENGTH: 18 MCG; FORMULATION: CAPSULE  ADMINISTRATION CORRECT? YES  ACTION(S) TAKEN WIT
     Route: 048
     Dates: start: 2013, end: 201612
  4. ALBUTEROL VIA NEBULIZER [Concomitant]
     Indication: ASTHMA
     Dosage: BID;
     Route: 055
  5. OMEPRAZOLE. [Concomitant]
     Active Substance: OMEPRAZOLE
     Indication: HYPERCHLORHYDRIA
     Dosage: QD;  FORM STRENGTH: 40MG
     Route: 048
     Dates: start: 2014
  6. RANEXA [Concomitant]
     Active Substance: RANOLAZINE
     Indication: CARDIAC DISORDER
     Dosage: 2 TABLETS QD;  FORM STRENGTH: 100MG
     Route: 048
  7. ATORVASTATIN [Concomitant]
     Active Substance: ATORVASTATIN
     Indication: BLOOD CHOLESTEROL INCREASED
     Dosage: QD;  FORM STRENGTH: 40MG
     Route: 048
     Dates: start: 2012
  8. SYMBICORT [Concomitant]
     Active Substance: BUDESONIDE\FORMOTEROL FUMARATE DIHYDRATE
     Indication: CHRONIC OBSTRUCTIVE PULMONARY DISEASE
     Dosage: 2 PUFFS BID;  FORM STRENGTH: 160MCG/4.5MCG
     Route: 055
     Dates: start: 2013
  9. XARELTO [Concomitant]
     Active Substance: RIVAROXABAN
     Indication: PRODUCT USED FOR UNKNOWN INDICATION
     Dosage: FORM STRENGTH: 20MG
     Route: 048
     Dates: start: 201612

REACTIONS (2)
  - Dyspnoea [Unknown]
  - Cough [Recovered/Resolved]

NARRATIVE: CASE EVENT DATE: 2013
